FAERS Safety Report 6229698-2 (Version None)
Quarter: 2009Q2

REPORT INFORMATION
  Report Type: 
  Country: None (occurrence: None)
  Receive Date: 20090615
  Receipt Date: 20090604
  Transmission Date: 20091009
  Serious: Yes (Other)
  Sender: FDA-Public Use
  Company Number: US-JNJFOC-20090602325

PATIENT
  Sex: Male
  Weight: 76.2 kg

DRUGS (8)
  1. REMICADE [Suspect]
     Indication: CROHN'S DISEASE
     Route: 042
  2. NORVASC [Concomitant]
     Indication: BLOOD PRESSURE
  3. TOPROL-XL [Concomitant]
     Indication: BLOOD PRESSURE
  4. CONCERTA [Concomitant]
     Indication: ATTENTION DEFICIT/HYPERACTIVITY DISORDER
  5. PRILOSEC [Concomitant]
  6. CRESTOR [Concomitant]
     Indication: BLOOD CHOLESTEROL INCREASED
  7. CLONAZEPAM [Concomitant]
     Indication: SLEEP APNOEA SYNDROME
  8. VITAMIN [Concomitant]

REACTIONS (4)
  - HEADACHE [None]
  - INTERVERTEBRAL DISC PROTRUSION [None]
  - OEDEMA PERIPHERAL [None]
  - WEIGHT INCREASED [None]
